FAERS Safety Report 8551913-0 (Version None)
Quarter: 2012Q3

REPORT INFORMATION
  Report Type: 
  Country: None (occurrence: None)
  Receive Date: 20120730
  Receipt Date: 20120724
  Transmission Date: 20120928
  Serious: Yes (Hospitalization)
  Sender: FDA-Public Use
  Company Number: KR-JNJFOC-20120713074

PATIENT
  Sex: Male
  Weight: 50.2 kg

DRUGS (4)
  1. REMICADE [Suspect]
     Indication: CROHN'S DISEASE
     Dosage: FREQ. 1
     Route: 042
     Dates: start: 20120215, end: 20120215
  2. REMICADE [Suspect]
     Dosage: FREQ. 1
     Route: 042
     Dates: start: 20120118, end: 20120118
  3. REMICADE [Suspect]
     Dosage: FREQ. 1
     Route: 042
     Dates: start: 20120412, end: 20120611
  4. REMICADE [Suspect]
     Dosage: FREQ. 1
     Route: 042
     Dates: start: 20120104, end: 20120104

REACTIONS (4)
  - ABDOMINAL PAIN [None]
  - PYREXIA [None]
  - DIARRHOEA [None]
  - GASTROINTESTINAL INFLAMMATION [None]
